FAERS Safety Report 6855811-X (Version None)
Quarter: 2010Q3

REPORT INFORMATION
  Report Type: 
  Country: None (occurrence: None)
  Receive Date: 20100719
  Receipt Date: 20100705
  Transmission Date: 20110219
  Serious: Yes (Death)
  Sender: FDA-Public Use
  Company Number: DE-RANBAXY-2010RR-35753

PATIENT
  Age: 27 Year
  Sex: Female
  Weight: 55 kg

DRUGS (1)
  1. PARACETAMOL [Suspect]
     Indication: PYREXIA
     Dosage: UNK

REACTIONS (3)
  - ACUTE HEPATIC FAILURE [None]
  - HEPATORENAL SYNDROME [None]
  - RENAL FAILURE ACUTE [None]
